FAERS Safety Report 15112326 (Version 1)
Quarter: 2018Q3

REPORT INFORMATION
  Report Type: Report from Study
  Country: AU (occurrence: AU)
  Receive Date: 20180705
  Receipt Date: 20180705
  Transmission Date: 20181010
  Serious: Yes (Other)
  Sender: FDA-Public Use
  Company Number: AU-MYLANLABS-2017M1016938

PATIENT
  Age: 46 Year
  Sex: Female

DRUGS (2)
  1. CLOZARIL [Suspect]
     Active Substance: CLOZAPINE
     Indication: SCHIZOPHRENIA
     Dosage: 125 MG, UNK
     Route: 048
     Dates: start: 20170223
  2. CLOZARIL [Suspect]
     Active Substance: CLOZAPINE
     Dosage: 175 MG, UNK
     Route: 048
     Dates: start: 20170224, end: 20170314

REACTIONS (5)
  - C-reactive protein increased [Unknown]
  - Myocarditis [Unknown]
  - General physical condition abnormal [Recovered/Resolved]
  - Infectious mononucleosis [Unknown]
  - Troponin I increased [Unknown]

NARRATIVE: CASE EVENT DATE: 20170302
